FAERS Safety Report 17328239 (Version 4)
Quarter: 2020Q2

REPORT INFORMATION
  Report Type: Spontaneous
  Country: US (occurrence: US)
  Receive Date: 20200127
  Receipt Date: 20200601
  Transmission Date: 20200713
  Serious: Yes (Other)
  Sender: FDA-Public Use
  Company Number: US-VIFOR (INTERNATIONAL) INC.-VIT-2020-00484

PATIENT
  Age: 65 Year
  Sex: Male
  Weight: 128.48 kg

DRUGS (14)
  1. AMLODIPINE;BENAZEPRIL HYDROCHLORIDE [Concomitant]
     Dosage: 10-20 MG
     Route: 048
     Dates: start: 20200310
  2. VALIUM [Concomitant]
     Active Substance: DIAZEPAM
     Dosage: 1 TABLET
     Route: 048
  3. LITHIUM CARBONATE. [Concomitant]
     Active Substance: LITHIUM CARBONATE
     Route: 048
  4. ACETAMINOPHEN;CODEINE [Concomitant]
     Active Substance: ACETAMINOPHEN\CODEINE PHOSPHATE
     Dosage: 1-2
     Route: 048
  5. VELTASSA [Suspect]
     Active Substance: PATIROMER
     Indication: NEPHROLITHIASIS
     Route: 048
     Dates: start: 20200102
  6. POTASSIUM CITRATE. [Concomitant]
     Active Substance: POTASSIUM CITRATE
     Route: 048
     Dates: start: 20170617
  7. VELTASSA [Suspect]
     Active Substance: PATIROMER
     Indication: HYPERKALAEMIA
     Route: 048
     Dates: start: 20171023
  8. TRILEPTAL [Concomitant]
     Active Substance: OXCARBAZEPINE
     Route: 048
  9. POTASSIUM CITRATE. [Concomitant]
     Active Substance: POTASSIUM CITRATE
     Indication: NEPHROLITHIASIS
     Dosage: ER 15MEQ
     Route: 048
     Dates: start: 20200216
  10. LITHIUM CARBONATE. [Concomitant]
     Active Substance: LITHIUM CARBONATE
     Route: 048
  11. VITAMIN D [Concomitant]
     Active Substance: VITAMIN D NOS
     Route: 048
  12. PALIPERIDONE ER [Concomitant]
     Active Substance: PALIPERIDONE
     Route: 048
  13. AMLODIPINE;BENAZEPRIL HYDROCHLORIDE [Concomitant]
     Dosage: 10-20 MG
     Route: 048
     Dates: start: 20180201
  14. CYMBALTA [Concomitant]
     Active Substance: DULOXETINE HYDROCHLORIDE
     Indication: DEPRESSION

REACTIONS (10)
  - Oedema [Unknown]
  - Blood urea increased [Not Recovered/Not Resolved]
  - Post procedural complication [Recovering/Resolving]
  - Blood potassium increased [Not Recovered/Not Resolved]
  - Renal impairment [Not Recovered/Not Resolved]
  - Blood sodium increased [Not Recovered/Not Resolved]
  - Abdominal pain [Recovering/Resolving]
  - Blood chloride increased [Not Recovered/Not Resolved]
  - Blood creatinine increased [Not Recovered/Not Resolved]
  - Dysuria [Recovered/Resolved]

NARRATIVE: CASE EVENT DATE: 20180206
